FAERS Safety Report 6781737-6 (Version None)
Quarter: 2010Q2

REPORT INFORMATION
  Report Type: 
  Country: None (occurrence: None)
  Receive Date: 20100618
  Receipt Date: 20100618
  Transmission Date: 20101027
  Serious: Yes (Life-Threatening, Hospitalization)
  Sender: FDA-Public Use
  Company Number: None

PATIENT
  Age: 61 Year
  Sex: Male
  Weight: 68 kg

DRUGS (2)
  1. QUETIAPINE [Suspect]
     Indication: MANIA
     Dosage: 400 MG HS PO
     Route: 048
     Dates: start: 20100302, end: 20100616
  2. TERAZOSIN HCL [Suspect]
     Indication: BENIGN PROSTATIC HYPERPLASIA
     Dosage: 2 MG HS PO
     Route: 048
     Dates: start: 20081211, end: 20100616

REACTIONS (3)
  - DIZZINESS [None]
  - ELECTROCARDIOGRAM QT PROLONGED [None]
  - ORTHOSTATIC HYPOTENSION [None]
